FAERS Safety Report 11024129 (Version 1)
Quarter: 2015Q2

REPORT INFORMATION
  Report Type: Spontaneous
  Country: AR (occurrence: AR)
  Receive Date: 20150413
  Receipt Date: 20150413
  Transmission Date: 20150821
  Serious: Yes (Hospitalization, Other)
  Sender: FDA-Public Use
  Company Number: PHHY2015AR029995

PATIENT
  Sex: Male

DRUGS (3)
  1. SINTROM [Suspect]
     Active Substance: ACENOCOUMAROL
     Indication: CARDIAC DISORDER
     Dosage: 3.25 DF, QD
     Route: 048
  2. SINTROM [Suspect]
     Active Substance: ACENOCOUMAROL
     Route: 065
  3. TRILEPTAL [Suspect]
     Active Substance: OXCARBAZEPINE
     Indication: SEIZURE
     Dosage: 3 DF, QD
     Route: 048

REACTIONS (4)
  - Feeling abnormal [Recovered/Resolved]
  - Seizure [Recovered/Resolved]
  - Scar [Recovered/Resolved]
  - Swelling [Recovered/Resolved]
